FAERS Safety Report 17679662 (Version 1)
Quarter: 2020Q2

REPORT INFORMATION
  Report Type: Spontaneous
  Country: US (occurrence: US)
  Receive Date: 20200417
  Receipt Date: 20200417
  Transmission Date: 20200714
  Serious: Yes (Life-Threatening, Hospitalization)
  Sender: FDA-Public Use
  Company Number: US-MYLANLABS-2020M1038114

PATIENT
  Age: 2 Month
  Sex: Male
  Weight: 12 kg

DRUGS (5)
  1. BUPIVACAINE. [Suspect]
     Active Substance: BUPIVACAINE
     Dosage: RECEIVED TOTAL DOSE OF 22.5MG.
     Route: 007
  2. LIDOCAINE. [Suspect]
     Active Substance: LIDOCAINE
     Dosage: RECEIVED TOTAL DOSE OF 120MG.
     Route: 007
  3. HYALURONIDASE [Concomitant]
     Active Substance: HYALURONIDASE
     Indication: PRODUCT USED FOR UNKNOWN INDICATION
     Dosage: RECEIVED HYALURONIDASE (7.5 IU/ML).
     Route: 007
  4. BUPIVACAINE. [Suspect]
     Active Substance: BUPIVACAINE
     Indication: LOCAL ANAESTHESIA
     Dosage: 1.5 MILLILITER
     Route: 007
  5. LIDOCAINE. [Suspect]
     Active Substance: LIDOCAINE
     Indication: LOCAL ANAESTHESIA
     Dosage: 1.5 MILLILITER
     Route: 007

REACTIONS (7)
  - Electrocardiogram ST segment elevation [Recovered/Resolved]
  - Overdose [Recovered/Resolved]
  - Tachycardia [Recovered/Resolved]
  - Oxygen saturation decreased [Recovered/Resolved]
  - Electrocardiogram T wave amplitude increased [Recovered/Resolved]
  - Generalised tonic-clonic seizure [Recovered/Resolved]
  - Agitation [Recovered/Resolved]
